FAERS Safety Report 5382232-1 (Version None)
Quarter: 2007Q3

REPORT INFORMATION
  Report Type: 
  Country: None (occurrence: None)
  Receive Date: 20070709
  Receipt Date: 20070627
  Transmission Date: 20080115
  Serious: Yes (Other)
  Sender: FDA-Public Use
  Company Number: US-PFIZER INC-2007053843

PATIENT
  Sex: Female
  Weight: 99.8 kg

DRUGS (5)
  1. CHANTIX [Suspect]
     Indication: SMOKING CESSATION THERAPY
     Dates: start: 20070601, end: 20070626
  2. METFORMIN HCL [Suspect]
     Indication: DIABETES MELLITUS
  3. ACTOS [Concomitant]
  4. ZOCOR [Concomitant]
  5. TOPROL-XL [Concomitant]

REACTIONS (2)
  - ASTHENIA [None]
  - BLOOD GLUCOSE INCREASED [None]
